FAERS Safety Report 9740747 (Version 1)
Quarter: 2013Q4

REPORT INFORMATION
  Report Type: Spontaneous
  Country: US (occurrence: US)
  Receive Date: 20131209
  Receipt Date: 20131209
  Transmission Date: 20140711
  Serious: No
  Sender: FDA-Public Use
  Company Number: US-BIOGENIDEC-2013BI101192

PATIENT
  Age: 44 Year
  Sex: 0

DRUGS (6)
  1. TECFIDERA [Suspect]
     Indication: MULTIPLE SCLEROSIS
     Dates: start: 201308
  2. KLONOPIN [Concomitant]
  3. GABAPENTIN [Concomitant]
  4. BACLOFEN [Concomitant]
  5. PERCOCET [Concomitant]
  6. MELATONIN [Concomitant]

REACTIONS (1)
  - Asthenia [Unknown]
